FAERS Safety Report 6803638-7 (Version None)
Quarter: 2010Q2

REPORT INFORMATION
  Report Type: 
  Country: None (occurrence: None)
  Receive Date: 20100628
  Receipt Date: 20100621
  Transmission Date: 20101027
  Serious: Yes (Death, Disabling)
  Sender: FDA-Public Use
  Company Number: JP-BRISTOL-MYERS SQUIBB COMPANY-14825632

PATIENT
  Age: 10 Year
  Sex: Female
  Weight: 20 kg

DRUGS (11)
  1. SPRYCEL [Suspect]
     Indication: ACUTE LYMPHOCYTIC LEUKAEMIA RECURRENT
     Dosage: 07APR09-20APR09;01MAY-22MAY;29MAY-11JUN;20JUN-06JUL;17JUL-06AUG;14AUG09-03SEP09;11-SEP09-24SEP09
     Route: 048
     Dates: start: 20090216, end: 20090924
  2. METHOTREXATE [Suspect]
     Indication: ACUTE LYMPHOCYTIC LEUKAEMIA RECURRENT
     Route: 048
     Dates: start: 20090612
  3. LEUKERIN [Suspect]
     Indication: ACUTE LYMPHOCYTIC LEUKAEMIA RECURRENT
     Dosage: 38MG/D - 12JUN09-01JUL09 20MG/D - 02JUL09-06JUL09 10MG/D - 07JUL09-08JUL09; 04SEP-ONG
     Route: 048
     Dates: start: 20090612
  4. PIPERACILLIN SODIUM [Concomitant]
     Dosage: INJ
     Route: 042
     Dates: start: 20090318, end: 20090327
  5. FAMOTIDINE INJ [Concomitant]
     Route: 042
  6. CEFPIROME SULFATE [Concomitant]
     Dosage: INJ; 2.1G/D - 12JUN09-22JUN09;1.8G - 09JUL-19JUL09
     Route: 042
     Dates: start: 20090612, end: 20090719
  7. PANIPENEM + BETAMIPRON [Concomitant]
     Dosage: INJ
     Route: 042
     Dates: start: 20090622, end: 20090626
  8. FOSFLUCONAZOLE [Concomitant]
     Dosage: INJ
     Route: 042
     Dates: start: 20090622, end: 20090630
  9. AMPHOTERICIN B FOR INJECTION [Concomitant]
     Dosage: INJ
     Route: 042
     Dates: start: 20090630, end: 20090717
  10. MEROPENEM [Concomitant]
     Dosage: MEROPENEM HYDRATE INJ
     Route: 042
     Dates: start: 20090719, end: 20090723
  11. VORICONAZOLE [Concomitant]
     Dosage: TABS; 100MG/DAY ORAL 28AUG-ONG
     Route: 042
     Dates: start: 20090717, end: 20090827

REACTIONS (6)
  - ANAEMIA [None]
  - CARDIAC FAILURE [None]
  - GASTROINTESTINAL HAEMORRHAGE [None]
  - GENERALISED OEDEMA [None]
  - HEPATIC ENZYME INCREASED [None]
  - PLEURAL EFFUSION [None]
